FAERS Safety Report 8408101-8 (Version None)
Quarter: 2012Q2

REPORT INFORMATION
  Report Type: 
  Country: None (occurrence: None)
  Receive Date: 20120323
  Receipt Date: 20110719
  Transmission Date: 20120825
  Serious: Yes (Other)
  Sender: FDA-Public Use
  Company Number: 163-21880-11042645

PATIENT
  Age: 74 Year
  Sex: Male

DRUGS (3)
  1. REVLIMID [Suspect]
     Indication: MULTIPLE MYELOMA
     Dosage: 25 MG, DAILY FOR 14 DAYS, PO
     Route: 048
     Dates: start: 20110312
  2. DEXAMETHASONE [Concomitant]
  3. VELCADE [Concomitant]

REACTIONS (2)
  - OEDEMA PERIPHERAL [None]
  - HALLUCINATION [None]
